FAERS Safety Report 11677490 (Version 1)
Quarter: 2015Q4

REPORT INFORMATION
  Report Type: Spontaneous
  Country: US (occurrence: US)
  Receive Date: 20151027
  Receipt Date: 20151027
  Transmission Date: 20160304
  Serious: No
  Sender: FDA-Public Use
  Company Number: US-ELI_LILLY_AND_COMPANY-US201010004267

PATIENT
  Age: 79 Year
  Sex: Female

DRUGS (1)
  1. FORTEO [Suspect]
     Active Substance: TERIPARATIDE
     Indication: OSTEOPOROSIS
     Dosage: 20 UG, DAILY (1/D)
     Dates: start: 20101002, end: 201010

REACTIONS (15)
  - Nonspecific reaction [Recovering/Resolving]
  - Pain in extremity [Recovered/Resolved]
  - Anger [Recovering/Resolving]
  - Gastric disorder [Recovering/Resolving]
  - Limb discomfort [Recovering/Resolving]
  - Eating disorder [Recovering/Resolving]
  - Abdominal pain upper [Recovering/Resolving]
  - Injection site bruising [Not Recovered/Not Resolved]
  - Asthenia [Recovered/Resolved]
  - Drug administered at inappropriate site [Recovered/Resolved]
  - Depressed mood [Recovering/Resolving]
  - Feeling cold [Recovering/Resolving]
  - Feeling abnormal [Recovering/Resolving]
  - Sleep disorder due to a general medical condition [Recovering/Resolving]
  - Feeling hot [Recovering/Resolving]

NARRATIVE: CASE EVENT DATE: 201010
